FAERS Safety Report 17820201 (Version 1)
Quarter: 2020Q2

REPORT INFORMATION
  Report Type: Report from Study
  Country: US (occurrence: US)
  Receive Date: 20200525
  Receipt Date: 20200525
  Transmission Date: 20200714
  Serious: Yes (Other)
  Sender: FDA-Public Use
  Company Number: US-BEH-2020117864

PATIENT
  Age: 17 Year
  Sex: Female
  Weight: 57.7 kg

DRUGS (6)
  1. PROTHROMBIN COMPLEX CONCENTRATE NOS [Suspect]
     Active Substance: COAGULATION FACTOR IX HUMAN\COAGULATION FACTOR VII HUMAN\COAGULATION FACTOR X HUMAN\PROTHROMBIN
     Indication: HAEMORRHAGE INTRACRANIAL
     Dosage: 30 INTERNATIONAL UNIT/KILOGRAM
     Route: 065
  2. FACTOR VIIA, RECOMBINANT [Suspect]
     Active Substance: COAGULATION FACTOR VIIA RECOMBINANT HUMAN
     Indication: PROCOAGULANT THERAPY
     Route: 065
  3. PROTHROMBIN COMPLEX CONCENTRATE NOS [Suspect]
     Active Substance: COAGULATION FACTOR IX HUMAN\COAGULATION FACTOR VII HUMAN\COAGULATION FACTOR X HUMAN\PROTHROMBIN
     Indication: COAGULOPATHY
     Dosage: 29 INTERNATIONAL UNIT/KILOGRAM
     Route: 065
  4. PROTHROMBIN COMPLEX CONCENTRATE NOS [Suspect]
     Active Substance: COAGULATION FACTOR IX HUMAN\COAGULATION FACTOR VII HUMAN\COAGULATION FACTOR X HUMAN\PROTHROMBIN
     Indication: SURGERY
     Dosage: 22 INTERNATIONAL UNIT/KILOGRAM
     Route: 065
  5. PROTHROMBIN COMPLEX CONCENTRATE NOS [Suspect]
     Active Substance: COAGULATION FACTOR IX HUMAN\COAGULATION FACTOR VII HUMAN\COAGULATION FACTOR X HUMAN\PROTHROMBIN
     Indication: INTRA-ABDOMINAL HAEMORRHAGE
     Dosage: 29 INTERNATIONAL UNIT/KILOGRAM
     Route: 065
  6. FRESH FROZEN PLASMA [Concomitant]
     Active Substance: HUMAN PLASMA
     Indication: PROCOAGULANT THERAPY
     Route: 065

REACTIONS (3)
  - Device related thrombosis [Unknown]
  - Deep vein thrombosis [Unknown]
  - Complication associated with device [Unknown]
